FAERS Safety Report 8112501-3 (Version None)
Quarter: 2011Q4

REPORT INFORMATION
  Report Type: 
  Country: None (occurrence: None)
  Receive Date: 20111227
  Receipt Date: 20111129
  Transmission Date: 20120403
  Serious: Yes (Hospitalization, Disabling)
  Sender: FDA-Public Use
  Company Number: PHEH2011US008807

PATIENT
  Age: 45 Year
  Sex: Female

DRUGS (11)
  1. GILENYA [Suspect]
     Indication: MULTIPLE SCLEROSIS
     Dosage: 0.5 MG, QD, ORAL
     Route: 048
     Dates: start: 20110701
  2. BACLOFEN [Concomitant]
  3. CITALOPRAM HYDROBROMIDE [Concomitant]
  4. TRILEPTAL [Concomitant]
  5. ONDANSETRON [Concomitant]
  6. PRAMIPEXOLE DIHYDROCHLORIDE [Concomitant]
  7. DIAZEPAM [Concomitant]
  8. MIRAPEX [Concomitant]
  9. RIFAMPIN [Suspect]
  10. METRONIDAZOLE [Concomitant]
  11. SOLU-MEDROL [Concomitant]

REACTIONS (2)
  - STAPHYLOCOCCAL INFECTION [None]
  - DIZZINESS [None]
